FAERS Safety Report 4924293-7 (Version None)
Quarter: 2006Q1

REPORT INFORMATION
  Report Type: 
  Country: None (occurrence: None)
  Receive Date: 20060221
  Receipt Date: 20060210
  Transmission Date: 20060701
  Serious: Yes (Hospitalization)
  Sender: FDA-Public Use
  Company Number: 163-20785-05120079

PATIENT
  Age: 81 Year
  Sex: Male

DRUGS (6)
  1. THALOMID [Suspect]
     Indication: AMYLOIDOSIS
     Dosage: 50 MG, QHS, ORAL
     Route: 048
     Dates: start: 20050901, end: 20051101
  2. MELPHALAN (MELPHALAN) [Suspect]
     Indication: AMYLOIDOSIS
  3. PREDNISONE TAB [Suspect]
     Indication: AMYLOIDOSIS
  4. ZOCOR [Concomitant]
  5. ASPIRIN [Concomitant]
  6. PROTONIX [Concomitant]

REACTIONS (17)
  - ANAEMIA [None]
  - ATELECTASIS [None]
  - BLOOD ALBUMIN DECREASED [None]
  - BLOOD GLUCOSE INCREASED [None]
  - DIARRHOEA [None]
  - DUODENAL ULCER [None]
  - DYSPHAGIA [None]
  - FUNGAL INFECTION [None]
  - LOBAR PNEUMONIA [None]
  - LUNG CONSOLIDATION [None]
  - LYMPHOCYTE COUNT DECREASED [None]
  - MACROGLOSSIA [None]
  - NORMOCHROMIC NORMOCYTIC ANAEMIA [None]
  - PLEURAL EFFUSION [None]
  - PNEUMONIA ASPIRATION [None]
  - SINUS BRADYCARDIA [None]
  - SPUTUM CULTURE POSITIVE [None]
